FAERS Safety Report 4633928-8 (Version None)
Quarter: 2005Q2

REPORT INFORMATION
  Report Type: 
  Country: None (occurrence: None)
  Receive Date: 20050413
  Receipt Date: 20050209
  Transmission Date: 20051028
  Serious: Yes (Hospitalization)
  Sender: FDA-Public Use
  Company Number: CZ-BRISTOL-MYERS SQUIBB COMPANY-12854402

PATIENT
  Age: 21 Year
  Sex: Male

DRUGS (2)
  1. ARIPIPRAZOLE [Suspect]
     Indication: SCHIZOPHRENIA
     Route: 048
     Dates: start: 20040828, end: 20050107
  2. CLONAZEPAM [Concomitant]
     Dates: start: 20021009, end: 20050107

REACTIONS (1)
  - SCHIZOPHRENIA [None]
